FAERS Safety Report 8505648-0 (Version None)
Quarter: 2012Q3

REPORT INFORMATION
  Report Type: 
  Country: None (occurrence: None)
  Receive Date: 20120712
  Receipt Date: 20120706
  Transmission Date: 20120928
  Serious: Yes (Death, Hospitalization, Other)
  Sender: FDA-Public Use
  Company Number: DE-ELI_LILLY_AND_COMPANY-DE201203006420

PATIENT
  Sex: Female
  Weight: 49.5 kg

DRUGS (3)
  1. VITAMIN D [Concomitant]
  2. FORTEO [Suspect]
     Indication: OSTEOPOROSIS
     Dosage: UNK, QD
     Route: 058
     Dates: start: 20110124
  3. CALCIUM [Concomitant]

REACTIONS (7)
  - INFECTION [None]
  - SYNCOPE [None]
  - CARDIAC FAILURE ACUTE [None]
  - DEHYDRATION [None]
  - GASTROENTERITIS NOROVIRUS [None]
  - PNEUMONIA [None]
  - BLOOD GLUCOSE INCREASED [None]
